FAERS Safety Report 5759533-8 (Version None)
Quarter: 2008Q2

REPORT INFORMATION
  Report Type: 
  Country: None (occurrence: None)
  Receive Date: 20080604
  Receipt Date: 20080604
  Transmission Date: 20081010
  Serious: No
  Sender: FDA-Public Use
  Company Number: None

PATIENT
  Age: 69 Year
  Sex: Female
  Weight: 67 kg

DRUGS (3)
  1. DILAUDID [Suspect]
     Indication: CANCER PAIN
     Dosage: 1MG - 2MG Q 1 H PRN PER IV
     Route: 042
     Dates: start: 20080425, end: 20080505
  2. LANOXIN [Concomitant]
  3. ATIVAN [Concomitant]

REACTIONS (1)
  - UNRESPONSIVE TO STIMULI [None]
